FAERS Safety Report 14606781 (Version 1)
Quarter: 2018Q1

REPORT INFORMATION
  Report Type: Report from Study
  Country: GB (occurrence: GB)
  Receive Date: 20180307
  Receipt Date: 20180307
  Transmission Date: 20180509
  Serious: Yes (Other)
  Sender: FDA-Public Use
  Company Number: GB-ORION CORPORATION ORION PHARMA-TREX2018-0208

PATIENT
  Age: 76 Year
  Sex: Female

DRUGS (3)
  1. METHOTREXATE (TRADE NAME UNKNOWN) [Suspect]
     Active Substance: METHOTREXATE
     Route: 065
     Dates: start: 2017
  2. METHOTREXATE (TRADE NAME UNKNOWN) [Suspect]
     Active Substance: METHOTREXATE
     Dosage: DOSE INCREASED
     Route: 065
  3. INFLIXIMAB RECOMBINANT [Suspect]
     Active Substance: INFLIXIMAB
     Dosage: CYCLIC
     Route: 042

REACTIONS (2)
  - Urinary tract infection [Recovered/Resolved]
  - Vein collapse [Unknown]

NARRATIVE: CASE EVENT DATE: 2017
